FAERS Safety Report 17659759 (Version 1)
Quarter: 2020Q2

REPORT INFORMATION
  Report Type: Spontaneous
  Country: US (occurrence: US)
  Receive Date: 20200413
  Receipt Date: 20200413
  Transmission Date: 20200713
  Serious: No
  Sender: FDA-Public Use
  Company Number: US-BION-008477

PATIENT
  Age: 79 Year
  Sex: Female

DRUGS (1)
  1. ALEVE [Suspect]
     Active Substance: NAPROXEN SODIUM
     Indication: INFLAMMATION
     Dosage: TAKE ONE A DAY OR EVERY OTHER DAY
     Route: 048
     Dates: start: 201910, end: 20191229

REACTIONS (1)
  - Incorrect product administration duration [Not Recovered/Not Resolved]
